FAERS Safety Report 23745760 (Version 2)
Quarter: 2025Q3

REPORT INFORMATION
  Report Type: Spontaneous
  Country: EU (occurrence: EU)
  Receive Date: 20240416
  Receipt Date: 20250912
  Transmission Date: 20251020
  Serious: Yes (Death, Life-Threatening, Hospitalization, Other)
  Sender: MSN LABORATORIES PRIVATE LIMITED
  Company Number: EU-STADA-221090

PATIENT

DRUGS (6)
  1. PREGABALIN [Suspect]
     Active Substance: PREGABALIN
     Indication: Substance use
     Route: 065
  2. MORPHINE [Suspect]
     Active Substance: MORPHINE
     Indication: Substance use
     Route: 065
  3. CODEINE [Suspect]
     Active Substance: CODEINE
     Indication: Substance use
     Route: 065
  4. DIAZEPAM [Suspect]
     Active Substance: DIAZEPAM
     Indication: Substance use
     Route: 065
  5. METHADONE [Suspect]
     Active Substance: METHADONE HYDROCHLORIDE
     Indication: Substance use
     Route: 065
  6. QUETIAPINE [Suspect]
     Active Substance: QUETIAPINE
     Indication: Product used for unknown indication
     Route: 065

REACTIONS (7)
  - Asphyxia [Fatal]
  - Intentional product misuse [Fatal]
  - Drug abuse [Fatal]
  - Toxicity to various agents [Fatal]
  - Visceral congestion [Fatal]
  - Drug interaction [Fatal]
  - Respiratory depression [Fatal]
